FAERS Safety Report 9195433 (Version 2)
Quarter: 2013Q2

REPORT INFORMATION
  Report Type: Spontaneous
  Country: BR (occurrence: BR)
  Receive Date: 20130328
  Receipt Date: 20130423
  Transmission Date: 20140414
  Serious: Yes (Death, Other)
  Sender: FDA-Public Use
  Company Number: BR-AMGEN-BRASP2013020425

PATIENT
  Sex: Female

DRUGS (2)
  1. ENBREL [Suspect]
     Indication: PRODUCT USED FOR UNKNOWN INDICATION
     Dosage: UNK
     Dates: end: 2012
  2. CORTISONE [Suspect]
     Indication: RHEUMATIC DISORDER
     Dosage: UNK

REACTIONS (4)
  - Death [Fatal]
  - Feeling abnormal [Unknown]
  - Drug ineffective [Recovered/Resolved]
  - Pneumonia [Unknown]
